FAERS Safety Report 6132395-5 (Version None)
Quarter: 2009Q1

REPORT INFORMATION
  Report Type: 
  Country: None (occurrence: None)
  Receive Date: 20090325
  Receipt Date: 20090317
  Transmission Date: 20090719
  Serious: Yes (Other)
  Sender: FDA-Public Use
  Company Number: PHHY2009GB10193

PATIENT
  Age: 62 Year
  Sex: Female
  Weight: 78.6 kg

DRUGS (6)
  1. ZOMETA [Suspect]
     Indication: BONE PAIN
     Dosage: 4 MG, ONCE/SINGLE
     Dates: start: 20090105
  2. APREPITANT [Concomitant]
     Indication: PROPHYLACTIC CHEMOTHERAPY
     Dosage: 125 MG, 1 DOSE IN TOTAL
     Route: 048
  3. CAPECITABINE [Concomitant]
     Indication: GASTROOESOPHAGEAL CANCER
     Dosage: 1150 MG, BID
     Route: 048
     Dates: start: 20080911
  4. CISPLATIN [Concomitant]
     Indication: GASTROOESOPHAGEAL CANCER
     Dosage: 108 MG ONCE EVERY 3 WEEKS
     Route: 042
  5. DEXAMETHASONE TAB [Concomitant]
     Indication: PROPHYLACTIC CHEMOTHERAPY
     Dosage: 4 MG, BID
     Route: 048
  6. DOMPERIDONE [Concomitant]
     Indication: PROPHYLACTIC CHEMOTHERAPY
     Dosage: 20 MG, QD
     Route: 048

REACTIONS (8)
  - ALANINE AMINOTRANSFERASE [None]
  - BODY TEMPERATURE INCREASED [None]
  - BONE PAIN [None]
  - CHILLS [None]
  - LIVER FUNCTION TEST ABNORMAL [None]
  - NAUSEA [None]
  - NEUTROPHIL COUNT DECREASED [None]
  - VOMITING [None]
